FAERS Safety Report 5712024-2 (Version None)
Quarter: 2008Q2

REPORT INFORMATION
  Report Type: 
  Country: None (occurrence: None)
  Receive Date: 20080417
  Receipt Date: 20080404
  Transmission Date: 20081010
  Serious: Yes (Disabling)
  Sender: FDA-Public Use
  Company Number: 2008000802

PATIENT
  Age: 66 Year
  Sex: Male

DRUGS (5)
  1. ERLOTINIB (ERLOTINIB HCL) (TABLET) (ERLOTINIB HCL) [Suspect]
     Indication: LUNG ADENOCARCINOMA
     Dosage: (150 MG,QD),ORAL;   (150 MG,ONCE EVERY 3 DAYS),ORAL
     Route: 048
     Dates: start: 20080117, end: 20080312
  2. FAMOTIDINE [Concomitant]
  3. MOBIC [Concomitant]
  4. FAMOTIDINE [Concomitant]
  5. MELOXICAM [Concomitant]

REACTIONS (5)
  - DERMATITIS ACNEIFORM [None]
  - HAEMORRHAGE [None]
  - IMPETIGO [None]
  - NAIL DISORDER [None]
  - NASAL MUCOSAL DISORDER [None]
